FAERS Safety Report 12267289 (Version 3)
Quarter: 2016Q2

REPORT INFORMATION
  Report Type: Report from Study
  Country: IL (occurrence: IL)
  Receive Date: 20160414
  Receipt Date: 20160510
  Transmission Date: 20160815
  Serious: Yes (Hospitalization)
  Sender: FDA-Public Use
  Company Number: PHHY2016IL048793

PATIENT
  Age: 30 Year
  Sex: Male

DRUGS (2)
  1. GILENYA [Suspect]
     Active Substance: FINGOLIMOD HYDROCHLORIDE
     Indication: MULTIPLE SCLEROSIS
     Dosage: 0.5 MG, QD
     Route: 048
     Dates: start: 20121028, end: 20160409
  2. GILENYA [Suspect]
     Active Substance: FINGOLIMOD HYDROCHLORIDE
     Dosage: 6 DF, QW
     Route: 048
     Dates: start: 20160415

REACTIONS (9)
  - Prescribed underdose [Unknown]
  - Impulsive behaviour [Unknown]
  - Speech disorder [Unknown]
  - Muscular weakness [Not Recovered/Not Resolved]
  - Abnormal behaviour [Recovering/Resolving]
  - Tremor [Not Recovered/Not Resolved]
  - Nervousness [Unknown]
  - Paraesthesia [Not Recovered/Not Resolved]
  - Emotional distress [Unknown]

NARRATIVE: CASE EVENT DATE: 201604
